FAERS Safety Report 8556553-5 (Version None)
Quarter: 2012Q3

REPORT INFORMATION
  Report Type: 
  Country: None (occurrence: None)
  Receive Date: 20120801
  Receipt Date: 20120724
  Transmission Date: 20120928
  Serious: Yes (Other)
  Sender: FDA-Public Use
  Company Number: ES-SANOFI-AVENTIS-2012SA052121

PATIENT
  Age: 73 Year
  Sex: Male

DRUGS (2)
  1. ATENOLOL [Concomitant]
     Indication: ARRHYTHMIA
     Dates: start: 20100301, end: 20110501
  2. DRONEDARONE HCL [Suspect]
     Indication: ARRHYTHMIA
     Route: 065

REACTIONS (6)
  - INTERSTITIAL LUNG DISEASE [None]
  - COUGH [None]
  - HYPOXIA [None]
  - DYSPNOEA [None]
  - DYSPEPSIA [None]
  - RALES [None]
